FAERS Safety Report 4342068-7 (Version None)
Quarter: 2004Q2

REPORT INFORMATION
  Report Type: 
  Country: None (occurrence: None)
  Receive Date: 20040415
  Receipt Date: 20040402
  Transmission Date: 20050107
  Serious: Yes (Hospitalization)
  Sender: FDA-Public Use
  Company Number: US072081

PATIENT
  Age: 66 Year
  Sex: Female

DRUGS (3)
  1. ENBREL [Suspect]
     Indication: DERMATITIS ATOPIC
     Dosage: 25 MG, 3 IN 1 WEEKS, SC
     Route: 058
     Dates: start: 20031006
  2. DOXEPIN HCL [Concomitant]
  3. HYDROXYZINE [Concomitant]

REACTIONS (1)
  - CHRONIC OBSTRUCTIVE AIRWAYS DISEASE EXACERBATED [None]
